FAERS Safety Report 10768757 (Version 1)
Quarter: 2015Q1

REPORT INFORMATION
  Report Type: Spontaneous
  Country: US (occurrence: US)
  Receive Date: 20150206
  Receipt Date: 20150206
  Transmission Date: 20150721
  Serious: No
  Sender: FDA-Public Use
  Company Number: US-PFIZER INC-2015047401

PATIENT
  Sex: Male

DRUGS (1)
  1. QUILLIVANT XR [Suspect]
     Active Substance: METHYLPHENIDATE HYDROCHLORIDE
     Dosage: 4 ML, 1X/DAY, IN THE MORNING
     Route: 048

REACTIONS (2)
  - Drug effect incomplete [Unknown]
  - Decreased appetite [Unknown]
